FAERS Safety Report 7861102-0 (Version None)
Quarter: 2011Q4

REPORT INFORMATION
  Report Type: 
  Country: None (occurrence: None)
  Receive Date: 20111027
  Receipt Date: 20111018
  Transmission Date: 20120403
  Serious: Yes (Hospitalization, Other)
  Sender: FDA-Public Use
  Company Number: US-BAYER-2011-015685

PATIENT
  Age: 32 Year
  Sex: Female

DRUGS (4)
  1. YASMIN [Suspect]
     Indication: CONTRACEPTION
     Dosage: UNK
     Route: 048
     Dates: start: 20011217, end: 20091101
  2. YAZ [Suspect]
     Indication: CONTRACEPTION
     Dosage: UNK
     Route: 048
     Dates: start: 20011217, end: 20091101
  3. YAZ [Suspect]
     Indication: PREMENSTRUAL SYNDROME
  4. YASMIN [Suspect]
     Indication: PREMENSTRUAL SYNDROME

REACTIONS (5)
  - GALLBLADDER DISORDER [None]
  - CONSTIPATION [None]
  - CHOLELITHIASIS [None]
  - CHOLECYSTITIS CHRONIC [None]
  - ABDOMINAL PAIN UPPER [None]
